FAERS Safety Report 4557070-X (Version None)
Quarter: 2005Q1

REPORT INFORMATION
  Report Type: 
  Country: None (occurrence: None)
  Receive Date: 20050120
  Receipt Date: 20050105
  Transmission Date: 20050727
  Serious: Yes (Death, Life-Threatening, Hospitalization)
  Sender: FDA-Public Use
  Company Number: FR-GLAXOSMITHKLINE-B0363610A

PATIENT
  Age: 75 Year
  Sex: Female
  Weight: 61 kg

DRUGS (6)
  1. DEROXAT [Suspect]
     Dosage: 20MG PER DAY
     Route: 048
     Dates: start: 20041124, end: 20041128
  2. SINTROM [Suspect]
     Route: 048
     Dates: start: 20041125
  3. CALCIPARINE [Suspect]
     Dosage: 20000IU PER DAY
     Route: 058
     Dates: start: 20041126, end: 20041129
  4. KARDEGIC [Suspect]
     Dosage: 75MG PER DAY
     Route: 048
     Dates: start: 20041125, end: 20041129
  5. PLAVIX [Suspect]
     Dosage: 75MG PER DAY
     Route: 048
     Dates: start: 20041125, end: 20041129
  6. STENT PLACEMENT [Concomitant]
     Dates: start: 20041126

REACTIONS (12)
  - ABDOMINAL PAIN [None]
  - ANAEMIA [None]
  - BLOOD PRESSURE DECREASED [None]
  - COAGULATION FACTOR DECREASED [None]
  - CORONARY ARTERY STENOSIS [None]
  - INTESTINAL INFARCTION [None]
  - KAOLIN CEPHALIN CLOTTING TIME PROLONGED [None]
  - PLATELET COUNT DECREASED [None]
  - POST PROCEDURAL COMPLICATION [None]
  - RETROPERITONEAL HAEMATOMA [None]
  - RETROPERITONEAL HAEMORRHAGE [None]
  - THERAPY NON-RESPONDER [None]
